FAERS Safety Report 11269415 (Version 1)
Quarter: 2015Q3

REPORT INFORMATION
  Report Type: Spontaneous
  Country: US (occurrence: None)
  Receive Date: 20150713
  Receipt Date: 20150713
  Transmission Date: 20151125
  Serious: No
  Sender: FDA-Public Use
  Company Number: None

PATIENT
  Age: 7 Year
  Sex: Female
  Weight: 26.99 kg

DRUGS (1)
  1. GENERIC INTUNIV ACTAVIS [Suspect]
     Active Substance: GUANFACINE HYDROCHLORIDE
     Indication: ATTENTION DEFICIT/HYPERACTIVITY DISORDER
     Dates: start: 20141121, end: 20150205

REACTIONS (4)
  - Drug ineffective [None]
  - Abnormal behaviour [None]
  - Disturbance in attention [None]
  - Product substitution issue [None]
